FAERS Safety Report 7311582-4 (Version None)
Quarter: 2011Q1

REPORT INFORMATION
  Report Type: 
  Country: None (occurrence: None)
  Receive Date: 20110224
  Receipt Date: 20110210
  Transmission Date: 20110831
  Serious: Yes (Hospitalization, Other)
  Sender: FDA-Public Use
  Company Number: DE-NAPPMUNDI-DEU-2011-0006843

PATIENT
  Sex: Female

DRUGS (9)
  1. YASMIN [Concomitant]
  2. ZYPREXA [Concomitant]
  3. REYATAZ [Concomitant]
  4. CHLORALDURAT BLAU [Concomitant]
  5. CITALOPRAM [Concomitant]
  6. VIREAD [Concomitant]
  7. MORPHINE SULFATE [Suspect]
     Indication: DRUG DEPENDENCE
     Dosage: 400 MG, DAILY
     Route: 048
     Dates: start: 20101129
  8. VIDEX [Concomitant]
  9. RIVOTRIL [Concomitant]

REACTIONS (4)
  - PNEUMONIA INFLUENZAL [None]
  - COLITIS [None]
  - H1N1 INFLUENZA [None]
  - CROHN'S DISEASE [None]
